FAERS Safety Report 8587746-9 (Version None)
Quarter: 2012Q3

REPORT INFORMATION
  Report Type: 
  Country: None (occurrence: None)
  Receive Date: 20120813
  Receipt Date: 20120803
  Transmission Date: 20120928
  Serious: Yes (Hospitalization, Other)
  Sender: FDA-Public Use
  Company Number: CO-AMGEN-COLSP2012050049

PATIENT
  Age: 20 Year
  Sex: Female

DRUGS (2)
  1. ETANERCEPT [Suspect]
     Indication: RHEUMATOID ARTHRITIS
     Dosage: 50 MG, WEEKLY
     Route: 058
     Dates: start: 20120701
  2. ERGOTAMINE TARTRATE AND CAFFEINE [Suspect]
     Indication: HEADACHE
     Dosage: 100 MG, AS NEEDED
     Route: 048
     Dates: start: 20120802

REACTIONS (4)
  - HEADACHE [None]
  - DIZZINESS [None]
  - DYSPNOEA [None]
  - URTICARIA [None]
